FAERS Safety Report 6973745-7 (Version None)
Quarter: 2010Q3

REPORT INFORMATION
  Report Type: 
  Country: None (occurrence: None)
  Receive Date: 20100909
  Receipt Date: 20100831
  Transmission Date: 20110219
  Serious: Yes (Death, Hospitalization)
  Sender: FDA-Public Use
  Company Number: A0790960A

PATIENT
  Age: 62 Year
  Sex: Male

DRUGS (1)
  1. AVANDARYL [Suspect]
     Route: 048
     Dates: start: 20050101, end: 20070101

REACTIONS (4)
  - CARDIAC DISORDER [None]
  - CARDIOVASCULAR DISORDER [None]
  - DEATH [None]
  - INJURY [None]
